FAERS Safety Report 17037899 (Version 1)
Quarter: 2019Q4

REPORT INFORMATION
  Report Type: Spontaneous
  Country: US (occurrence: US)
  Receive Date: 20191115
  Receipt Date: 20191115
  Transmission Date: 20200122
  Serious: Yes (Other)
  Sender: FDA-Public Use
  Company Number: US-TEVA-2019-US-1136547

PATIENT

DRUGS (2)
  1. CEPHALEXIN. [Suspect]
     Active Substance: CEPHALEXIN
     Route: 065
     Dates: start: 20191012
  2. CEPHALEXIN. [Suspect]
     Active Substance: CEPHALEXIN
     Route: 065
     Dates: start: 20191013

REACTIONS (7)
  - Chest discomfort [Unknown]
  - Pain in extremity [Unknown]
  - Myalgia [Unknown]
  - Dysphagia [Recovering/Resolving]
  - Fatigue [Unknown]
  - Gait inability [Unknown]
  - Arthralgia [Unknown]
